FAERS Safety Report 13376311 (Version 2)
Quarter: 2017Q1

REPORT INFORMATION
  Report Type: Spontaneous
  Country: US (occurrence: US)
  Receive Date: 20170328
  Receipt Date: 20170331
  Transmission Date: 20170429
  Serious: Yes (Death, Other)
  Sender: FDA-Public Use
  Company Number: US-CONCORDIA PHARMACEUTICALS INC.-GSH201703-002014

PATIENT
  Age: 76 Year
  Sex: Female

DRUGS (2)
  1. DIGOXIN. [Suspect]
     Active Substance: DIGOXIN
  2. NOREPINEPHRINE [Concomitant]
     Active Substance: NOREPINEPHRINE\NOREPINEPHRINE BITARTRATE
     Indication: HYPOTENSION

REACTIONS (6)
  - Toxicity to various agents [Unknown]
  - Hyperkalaemia [Unknown]
  - Bradycardia [Fatal]
  - Bundle branch block right [Recovered/Resolved]
  - Cardiac arrest [Fatal]
  - Acute kidney injury [Unknown]
